FAERS Safety Report 10634806 (Version 3)
Quarter: 2015Q1

REPORT INFORMATION
  Report Type: Spontaneous
  Country: JP (occurrence: JP)
  Receive Date: 20141205
  Receipt Date: 20150123
  Transmission Date: 20150720
  Serious: Yes (Death, Other)
  Sender: FDA-Public Use
  Company Number: JP-PFIZER INC-2014329942

PATIENT
  Age: 50 Year
  Sex: Male
  Weight: 49 kg

DRUGS (1)
  1. INLYTA [Suspect]
     Active Substance: AXITINIB
     Indication: METASTATIC RENAL CELL CARCINOMA
     Dosage: 7 MG, 2X/DAY
     Route: 048
     Dates: start: 20140717, end: 20141125

REACTIONS (4)
  - Pneumonia [Fatal]
  - Pulmonary oedema [Unknown]
  - Disease progression [Fatal]
  - Metastatic renal cell carcinoma [Fatal]

NARRATIVE: CASE EVENT DATE: 20141125
